FAERS Safety Report 6688839-3 (Version None)
Quarter: 2010Q2

REPORT INFORMATION
  Report Type: 
  Country: None (occurrence: None)
  Receive Date: 20100420
  Receipt Date: 20100408
  Transmission Date: 20101027
  Serious: Yes (Death, Hospitalization)
  Sender: FDA-Public Use
  Company Number: US-PFIZER INC-2009264662

PATIENT
  Sex: Female
  Weight: 108 kg

DRUGS (1)
  1. SUTENT [Suspect]
     Indication: METASTATIC RENAL CELL CARCINOMA
     Dosage: 50 MG, DAILY X 28 DAYS EVERY 42 DAYS
     Route: 048
     Dates: start: 20081101, end: 20091101

REACTIONS (4)
  - ASTHENIA [None]
  - DEATH [None]
  - INFECTION [None]
  - PLEURISY [None]
